FAERS Safety Report 23130863 (Version 1)
Quarter: 2023Q4

REPORT INFORMATION
  Report Type: Spontaneous
  Country: AT (occurrence: AT)
  Receive Date: 20231031
  Receipt Date: 20231031
  Transmission Date: 20240110
  Serious: Yes (Hospitalization)
  Sender: FDA-Public Use
  Company Number: AT-ROCHE-3121935

PATIENT
  Age: 74 Year
  Sex: Female
  Weight: 53 kg

DRUGS (22)
  1. CAPECITABINE [Suspect]
     Active Substance: CAPECITABINE
     Dosage: 2500 MG
     Route: 048
     Dates: start: 20220118
  2. CAPECITABINE [Suspect]
     Active Substance: CAPECITABINE
     Indication: Breast cancer metastatic
     Dosage: 3000 MG, Q3MO (MOST RECENT DOSE ADMINISTERED ON /FEB/2022)
     Route: 048
     Dates: start: 20211025, end: 202201
  3. DOCETAXEL [Suspect]
     Active Substance: DOCETAXEL
     Indication: Breast cancer metastatic
     Dosage: 80 MG/M2, Q3W (MOST RECENT DOSE ADMINISTERED ON 13/OCT/20161 TIMES PER 3 WEEKS)
     Route: 042
     Dates: start: 20160629
  4. DENOSUMAB [Suspect]
     Active Substance: DENOSUMAB
     Indication: Breast cancer metastatic
     Dosage: 120 MG, Q4W (MOST RECENT DOSE ADMINISTERED ON /JAN/20211 TIMES PER 4 WEEKS)
     Route: 058
     Dates: start: 20161121
  5. FULVESTRANT [Suspect]
     Active Substance: FULVESTRANT
     Indication: Breast cancer metastatic
     Dosage: 500 MG, Q4W (MOST RECENT DOSE ADMINISTERED ON /OCT/20211 TIMES IN 4 WEEKS)
     Route: 030
     Dates: start: 20200716
  6. LETROZOLE [Suspect]
     Active Substance: LETROZOLE
     Indication: Breast cancer metastatic
     Dosage: 2.5 MG, QD (MOST RECENT DOSE ADMINISTERED ON 29/JUN/20201 TIME PER DAY)
     Route: 048
     Dates: start: 20161021
  7. PALBOCICLIB [Suspect]
     Active Substance: PALBOCICLIB
     Indication: Breast cancer metastatic
     Dosage: 100 MG (MOST RECENT DOSE ADMINISTERED ON /DEC/2020)
     Route: 048
     Dates: start: 202011, end: 202012
  8. PERTUZUMAB [Suspect]
     Active Substance: PERTUZUMAB
     Indication: Breast cancer metastatic
     Dosage: 420 MG, Q3W (MOST RECENT DOSE PRIOR TO THE EVENT: 27/FEB/20201 TIMES PER 3 WEEKS)
     Route: 042
     Dates: start: 20160629, end: 20180601
  9. RIBOCICLIB [Suspect]
     Active Substance: RIBOCICLIB
     Dosage: 600 MG, QMO (MOST RECENT DOSE ADMINISTERED ON 24 NOV 2020)
     Route: 048
     Dates: start: 20200716
  10. RIBOCICLIB [Suspect]
     Active Substance: RIBOCICLIB
     Indication: Breast cancer metastatic
     Dosage: 400 MG (MOST RECENT DOSE ADMINISTERED ON 18/NOV/2020)
     Route: 048
     Dates: start: 20200824
  11. TRASTUZUMAB [Suspect]
     Active Substance: TRASTUZUMAB
     Indication: Breast cancer metastatic
     Dosage: 354 MG, Q3W (MOST RECENT DOSE PRIOR TO THE EVENT: 27/FEB/20201 TIMES PER 3 WEEKS INTRAVENOUS DRIP (R
     Route: 042
     Dates: start: 20160629, end: 20180621
  12. METHYLPREDNISOLONE ACEPONATE [Concomitant]
     Active Substance: METHYLPREDNISOLONE ACEPONATE
     Indication: Palmar-plantar erythrodysaesthesia syndrome
     Dosage: UNK
     Route: 065
     Dates: start: 20201111
  13. AMOXICILLIN [Concomitant]
     Active Substance: AMOXICILLIN
     Indication: Osteonecrosis of jaw
     Dosage: UNK
     Route: 065
     Dates: start: 20210915
  14. BETAISODONA [Concomitant]
     Active Substance: POVIDONE-IODINE
     Indication: Paronychia
     Dosage: UNK
     Route: 065
     Dates: start: 20201111
  15. BETAMETHASONE DIPROPIONATE [Concomitant]
     Active Substance: BETAMETHASONE DIPROPIONATE
     Indication: Rash
     Dosage: UNK
     Route: 065
     Dates: start: 20180621
  16. EUTHYROX [Concomitant]
     Active Substance: LEVOTHYROXINE SODIUM
     Indication: Product used for unknown indication
     Dosage: UNK
     Route: 065
     Dates: start: 20210223
  17. Fulvestrant Pfs With Safetyglide [Concomitant]
     Indication: Breast cancer metastatic
     Route: 065
  18. HYDROMORPHONE HYDROCHLORIDE [Concomitant]
     Active Substance: HYDROMORPHONE HYDROCHLORIDE
     Indication: Pain
     Dosage: UNK
     Route: 065
     Dates: start: 20210915
  19. NEBIVOLOL HYDROCHLORIDE [Concomitant]
     Active Substance: NEBIVOLOL HYDROCHLORIDE
     Indication: Product used for unknown indication
     Dosage: UNK
     Route: 065
     Dates: start: 20170115
  20. Novalgin [Concomitant]
     Indication: Product used for unknown indication
     Dosage: UNK
     Route: 065
     Dates: start: 20210915
  21. PANTOPRAZOLE SODIUM [Concomitant]
     Active Substance: PANTOPRAZOLE SODIUM
     Indication: Gastritis
     Dosage: UNK
     Route: 065
     Dates: start: 20211115
  22. ASPIRIN [Concomitant]
     Active Substance: ASPIRIN
     Indication: Product used for unknown indication
     Dosage: UNK
     Route: 065
     Dates: start: 20170115

REACTIONS (2)
  - Contusion [Recovered/Resolved]
  - Blood bilirubin increased [Recovered/Resolved]

NARRATIVE: CASE EVENT DATE: 20211227
